FAERS Safety Report 22212788 (Version 1)
Quarter: 2023Q2

REPORT INFORMATION
  Report Type: Spontaneous
  Country: US (occurrence: US)
  Receive Date: 20230414
  Receipt Date: 20230414
  Transmission Date: 20230722
  Serious: No
  Sender: FDA-Public Use
  Company Number: US-ABBVIE-4725645

PATIENT

DRUGS (2)
  1. HUMIRA [Suspect]
     Active Substance: ADALIMUMAB
     Indication: Maternal exposure timing unspecified
     Route: 063
  2. HUMIRA [Suspect]
     Active Substance: ADALIMUMAB
     Route: 064

REACTIONS (2)
  - Foetal exposure during pregnancy [Unknown]
  - Exposure via breast milk [Unknown]
